FAERS Safety Report 13456119 (Version 2)
Quarter: 2017Q2

REPORT INFORMATION
  Report Type: Spontaneous
  Country: NO (occurrence: NO)
  Receive Date: 20170419
  Receipt Date: 20170428
  Transmission Date: 20170830
  Serious: Yes (Death, Hospitalization)
  Sender: FDA-Public Use
  Company Number: NO-SA-2017SA070602

PATIENT
  Age: 43 Year
  Sex: Female

DRUGS (1)
  1. ALEMTUZUMAB [Suspect]
     Active Substance: ALEMTUZUMAB
     Indication: MULTIPLE SCLEROSIS
     Dosage: NUMBER OF INFUSIONS: 5
     Route: 065

REACTIONS (4)
  - Encephalitis [Fatal]
  - Coma scale abnormal [Unknown]
  - Listeria test positive [Fatal]
  - Brain oedema [Fatal]
